FAERS Safety Report 9103567 (Version 4)
Quarter: 2013Q2

REPORT INFORMATION
  Report Type: Spontaneous
  Country: US (occurrence: US)
  Receive Date: 20130219
  Receipt Date: 20130530
  Transmission Date: 20140414
  Serious: Yes (Death)
  Sender: FDA-Public Use
  Company Number: US-GILEAD-2013-0069937

PATIENT
  Age: 69 Year
  Sex: Female

DRUGS (3)
  1. LETAIRIS [Suspect]
     Indication: PULMONARY HYPERTENSION
     Dosage: 10 MG, QD
     Route: 048
     Dates: start: 2011, end: 20130213
  2. LETAIRIS [Suspect]
     Indication: HYPERTENSION
  3. LETAIRIS [Suspect]
     Indication: HYPOXIA

REACTIONS (1)
  - Death [Fatal]
